FAERS Safety Report 15284536 (Version 1)
Quarter: 2018Q3

REPORT INFORMATION
  Report Type: Spontaneous
  Country: US (occurrence: US)
  Receive Date: 20180801
  Receipt Date: 20180801
  Transmission Date: 20181010
  Serious: Yes (Hospitalization)
  Sender: FDA-Public Use
  Company Number: None

PATIENT
  Age: 70 Year
  Sex: Female

DRUGS (13)
  1. TESTOSTERONE. [Concomitant]
     Active Substance: TESTOSTERONE
  2. VITAMIN E [Concomitant]
     Active Substance: .ALPHA.-TOCOPHEROL
  3. RILUZOLE. [Suspect]
     Active Substance: RILUZOLE
     Indication: DRUG THERAPY
     Route: 048
     Dates: start: 20170922
  4. CARAFATE [Concomitant]
     Active Substance: SUCRALFATE
  5. GLYCOPYRROL [Concomitant]
  6. VITAMIN B12 [Concomitant]
     Active Substance: CYANOCOBALAMIN
  7. ADVIL [Concomitant]
     Active Substance: IBUPROFEN
  8. NUEDEXTA [Concomitant]
     Active Substance: DEXTROMETHORPHAN HYDROBROMIDE\QUINIDINE SULFATE
  9. FOLIC ACID. [Concomitant]
     Active Substance: FOLIC ACID
  10. DELSYM [Concomitant]
     Active Substance: DEXTROMETHORPHAN
  11. VITAMIN D3 [Concomitant]
     Active Substance: CHOLECALCIFEROL
  12. FLUTICASONE. [Concomitant]
     Active Substance: FLUTICASONE
  13. METOPROLOL TARTRATE. [Concomitant]
     Active Substance: METOPROLOL TARTRATE

REACTIONS (2)
  - Abdominal pain [None]
  - Pancreatic enzyme abnormality [None]

NARRATIVE: CASE EVENT DATE: 20180511
